FAERS Safety Report 8487374 (Version 3)
Quarter: 2012Q4

REPORT INFORMATION
  Report Type: 
  Country: US (occurrence: US)
  Receive Date: 20120402
  Receipt Date: 20120829
  Transmission Date: 20130627
  Serious: Yes (Hospitalization)
  Sender: FDA-Public Use
  Company Number: US-BAYER-2012-028551

PATIENT
  Age: 44 Year
  Sex: Female
  Weight: 65 kg

DRUGS (6)
  1. SORAFENIB [Suspect]
     Indication: BREAST CANCER
     Dosage: 600 mg daily
     Route: 048
     Dates: start: 20120314, end: 20120320
  2. UNSPECIFIED INGREDIENTS [Suspect]
     Indication: BREAST CANCER
     Dosage: 1750 mg, BID
     Route: 048
     Dates: start: 20120314, end: 20120320
  3. ACETAMINOPHEN\OXYCODONE HYDROCHLORIDE [Concomitant]
     Dosage: 5 mg, QD
  4. ALPRAZOLAM [Concomitant]
     Dosage: 0.5 mg, QD
     Dates: start: 20120216
  5. ONDANSETRON HYDROCHLORIDE [Concomitant]
     Dosage: 4 mg, QD
     Dates: start: 20120312
  6. COMPAZINE [Concomitant]
     Dosage: 10 mg, UNK
     Dates: start: 20120312

REACTIONS (9)
  - Cytotoxic oedema [Recovered/Resolved]
  - Anxiety [None]
  - Pain [None]
  - Dehydration [None]
  - Cerebral infarction [None]
  - Leukoencephalopathy [None]
  - Neurotoxicity [None]
  - Haemoglobin decreased [None]
  - Haematocrit decreased [None]
